FAERS Safety Report 5356272-2 (Version None)
Quarter: 2007Q2

REPORT INFORMATION
  Report Type: 
  Country: None (occurrence: None)
  Receive Date: 20070612
  Receipt Date: 20070531
  Transmission Date: 20071010
  Serious: Yes (Other)
  Sender: FDA-Public Use
  Company Number: US-PFIZER INC-2007045773

PATIENT
  Sex: Female
  Weight: 86.2 kg

DRUGS (3)
  1. CHANTIX [Suspect]
     Indication: EX-SMOKER
  2. SYNTHROID [Concomitant]
  3. DDAVP (NEEDS NO REFRIGERATION) [Concomitant]

REACTIONS (2)
  - INCORRECT DRUG ADMINISTRATION DURATION [None]
  - SHOULDER ARTHROPLASTY [None]
